APPROVED DRUG PRODUCT: LUBIPROSTONE
Active Ingredient: LUBIPROSTONE
Strength: 24MCG
Dosage Form/Route: CAPSULE;ORAL
Application: A206994 | Product #002 | TE Code: AB
Applicant: DR REDDYS LABORATORIES LTD
Approved: Feb 8, 2022 | RLD: No | RS: No | Type: RX